FAERS Safety Report 4927483-2 (Version None)
Quarter: 2006Q1

REPORT INFORMATION
  Report Type: 
  Country: None (occurrence: None)
  Receive Date: 20060228
  Receipt Date: 20050706
  Transmission Date: 20060701
  Serious: Yes (Death)
  Sender: FDA-Public Use
  Company Number: US-MERCK-0507USA00905

PATIENT
  Age: 60 Year
  Sex: Female
  Weight: 91 kg

DRUGS (3)
  1. VIOXX [Suspect]
     Indication: ARTHRITIS
     Route: 048
     Dates: start: 20020401, end: 20030416
  2. BEXTRA [Concomitant]
     Route: 065
  3. CELEBREX [Concomitant]
     Route: 065

REACTIONS (5)
  - CARDIAC ARREST [None]
  - CARDIOPULMONARY FAILURE [None]
  - CORONARY ARTERY DISEASE [None]
  - MAJOR DEPRESSION [None]
  - MYOCARDIAL INFARCTION [None]
